FAERS Safety Report 7040243-4 (Version None)
Quarter: 2010Q4

REPORT INFORMATION
  Report Type: 
  Country: None (occurrence: None)
  Receive Date: 20101012
  Receipt Date: 20100928
  Transmission Date: 20110411
  Serious: No
  Sender: FDA-Public Use
  Company Number: US-ASTRAZENECA-2010SE45873

PATIENT
  Age: 55 Year
  Sex: Female

DRUGS (10)
  1. SEROQUEL [Suspect]
     Indication: POST-TRAUMATIC STRESS DISORDER
     Route: 048
     Dates: start: 20060101
  2. SEROQUEL [Suspect]
     Dosage: 200 MG OR 400 MG
     Route: 048
     Dates: start: 20090101
  3. SEROQUEL [Suspect]
     Route: 048
     Dates: start: 20100101
  4. SYNTHROID [Concomitant]
  5. PRISTIQ [Concomitant]
  6. CLONAZEPAM [Concomitant]
     Indication: ANXIETY
  7. IRON [Concomitant]
  8. CALCIUM [Concomitant]
  9. VITAMIN TAB [Concomitant]
  10. SUDOGEST [Concomitant]
     Indication: MULTIPLE ALLERGIES

REACTIONS (7)
  - ANAEMIA [None]
  - EYE PAIN [None]
  - INFECTION [None]
  - INFLUENZA LIKE ILLNESS [None]
  - INTERVERTEBRAL DISC DEGENERATION [None]
  - SOMNOLENCE [None]
  - WHITE BLOOD CELL COUNT DECREASED [None]
